FAERS Safety Report 4952719-1 (Version None)
Quarter: 2006Q1

REPORT INFORMATION
  Report Type: 
  Country: None (occurrence: None)
  Receive Date: 20060320
  Receipt Date: 20040729
  Transmission Date: 20060701
  Serious: Yes (Hospitalization)
  Sender: FDA-Public Use
  Company Number: HQ8204408NOV2001

PATIENT
  Age: 68 Year
  Sex: Female
  Weight: 108.05 kg

DRUGS (3)
  1. MYLOTARG [Suspect]
     Indication: ACUTE MYELOID LEUKAEMIA
     Dosage: 19 MG ONE TIME PER ONE DOSE, INTRAVENOUS
     Route: 042
     Dates: start: 20011029, end: 20011029
  2. MYLOTARG [Suspect]
     Indication: ACUTE MYELOID LEUKAEMIA
     Dosage: 19 MG ONE TIME PER ONE DOSE, INTRAVENOUS
     Route: 042
     Dates: start: 20011112, end: 20011112
  3. ESTRADERM [Concomitant]

REACTIONS (7)
  - BACTERIA BLOOD IDENTIFIED [None]
  - CEREBRAL INFARCTION [None]
  - INFUSION RELATED REACTION [None]
  - NEUTROPENIA [None]
  - STAPHYLOCOCCAL INFECTION [None]
  - THROMBOCYTOPENIA [None]
  - WHITE BLOOD CELL COUNT DECREASED [None]
